FAERS Safety Report 10388437 (Version 1)
Quarter: 2014Q3

REPORT INFORMATION
  Report Type: Spontaneous
  Country: BE (occurrence: BE)
  Receive Date: 20140815
  Receipt Date: 20140815
  Transmission Date: 20150326
  Serious: Yes (Other)
  Sender: FDA-Public Use
  Company Number: BE-ENDO PHARMACEUTICALS INC.-AVEE20140179

PATIENT
  Age: 60 Year
  Sex: Male
  Weight: 72 kg

DRUGS (2)
  1. ANTINEOPLASTIC AGENTS [Concomitant]
     Active Substance: UNSPECIFIED INGREDIENT
     Indication: PRODUCT USED FOR UNKNOWN INDICATION
     Dosage: UNK
     Route: 065
  2. AVEED [Suspect]
     Active Substance: TESTOSTERONE UNDECANOATE
     Indication: HYPOGONADISM
     Dosage: UNK
     Route: 065
     Dates: start: 20130315

REACTIONS (3)
  - Abnormal sensation in eye [Recovered/Resolved]
  - Cough [Recovered/Resolved]
  - Paraesthesia mucosal [Recovered/Resolved]

NARRATIVE: CASE EVENT DATE: 20140806
